FAERS Safety Report 9659724 (Version 1)
Quarter: 2013Q4

REPORT INFORMATION
  Report Type: Spontaneous
  Country: US (occurrence: US)
  Receive Date: 20131031
  Receipt Date: 20131031
  Transmission Date: 20140711
  Serious: No
  Sender: FDA-Public Use
  Company Number: US-PFIZER INC-2013310364

PATIENT
  Sex: Female

DRUGS (1)
  1. LYRICA [Suspect]
     Dosage: UNK

REACTIONS (5)
  - Drug withdrawal syndrome [Unknown]
  - Restless legs syndrome [Unknown]
  - Insomnia [Unknown]
  - Diarrhoea [Unknown]
  - Therapeutic response unexpected [Unknown]
